FAERS Safety Report 8915916 (Version 1)
Quarter: 2012Q4

REPORT INFORMATION
  Report Type: 
  Country: US (occurrence: US)
  Receive Date: 20121119
  Receipt Date: 20121119
  Transmission Date: 20130627
  Serious: Yes (Death, Hospitalization, Other)
  Sender: FDA-Public Use
  Company Number: US-PFIZER INC-2012288150

PATIENT
  Age: 49 Year
  Sex: Male

DRUGS (1)
  1. ARGATROBAN [Suspect]
     Indication: CLOT BLOOD
     Dosage: UNK
     Route: 040

REACTIONS (3)
  - Wrong technique in drug usage process [Fatal]
  - Multi-organ failure [Fatal]
  - Pneumonia [Fatal]
